FAERS Safety Report 6375248-X (Version None)
Quarter: 2009Q3

REPORT INFORMATION
  Report Type: 
  Country: None (occurrence: None)
  Receive Date: 20090924
  Receipt Date: 20090915
  Transmission Date: 20100115
  Serious: Yes (Hospitalization)
  Sender: FDA-Public Use
  Company Number: A0658263A

PATIENT
  Sex: Female
  Weight: 58.6 kg

DRUGS (16)
  1. AVANDIA [Suspect]
     Dosage: 4MG PER DAY
     Route: 048
     Dates: start: 20030913, end: 20070824
  2. ASPIRIN [Concomitant]
  3. TOPROL-XL [Concomitant]
  4. DIOVAN [Concomitant]
  5. VYTORIN [Concomitant]
  6. COQ10 [Concomitant]
  7. CALCITRATE [Concomitant]
  8. MAGNESIUM [Concomitant]
  9. MULTIVITAMIN [Concomitant]
  10. UNSPECIFIED MEDICATION [Concomitant]
  11. PREVACID [Concomitant]
  12. DIOVAN [Concomitant]
  13. ZETIA [Concomitant]
  14. VERELAN [Concomitant]
  15. PRAVACHOL [Concomitant]
     Dates: start: 20040701
  16. FOSAMAX [Concomitant]

REACTIONS (2)
  - ACUTE CORONARY SYNDROME [None]
  - MYOCARDIAL INFARCTION [None]
